FAERS Safety Report 11736253 (Version 1)
Quarter: 2015Q4

REPORT INFORMATION
  Report Type: Spontaneous
  Country: US (occurrence: US)
  Receive Date: 20151113
  Receipt Date: 20151113
  Transmission Date: 20160304
  Serious: Yes (Other)
  Sender: FDA-Public Use
  Company Number: US-JNJFOC-20151010856

PATIENT
  Age: 65 Year
  Sex: Female

DRUGS (2)
  1. DOXORUBICIN HYDROCHLORIDE. [Suspect]
     Active Substance: DOXORUBICIN HYDROCHLORIDE
     Indication: OESOPHAGEAL CARCINOMA
     Route: 042
  2. MOTEXAFIN GADOLINIUM [Suspect]
     Active Substance: MOTEXAFIN GADOLINIUM
     Indication: OESOPHAGEAL CARCINOMA
     Route: 042

REACTIONS (3)
  - Product use issue [Unknown]
  - Off label use [Unknown]
  - Pulmonary embolism [Unknown]
